FAERS Safety Report 11165532 (Version 3)
Quarter: 2015Q3

REPORT INFORMATION
  Report Type: Spontaneous
  Country: IT (occurrence: IT)
  Receive Date: 20150604
  Receipt Date: 20150706
  Transmission Date: 20151125
  Serious: Yes (Hospitalization)
  Sender: FDA-Public Use
  Company Number: IT-JNJFOC-20150601999

PATIENT
  Age: 49 Year
  Sex: Female

DRUGS (5)
  1. EN [Suspect]
     Active Substance: DELORAZEPAM
     Indication: SELF INJURIOUS BEHAVIOUR
     Route: 048
     Dates: start: 20150528, end: 20150528
  2. HALDOL [Suspect]
     Active Substance: HALOPERIDOL
     Indication: SELF INJURIOUS BEHAVIOUR
     Route: 048
     Dates: start: 20150528, end: 20150528
  3. CYMBALTA [Suspect]
     Active Substance: DULOXETINE HYDROCHLORIDE
     Indication: SELF INJURIOUS BEHAVIOUR
     Route: 048
     Dates: start: 20150528, end: 20150528
  4. ZYPREXA [Suspect]
     Active Substance: OLANZAPINE
     Indication: SELF INJURIOUS BEHAVIOUR
     Route: 048
     Dates: start: 20150528, end: 20150528
  5. FLURAZEPAM [Suspect]
     Active Substance: FLURAZEPAM\FLURAZEPAM HYDROCHLORIDE
     Indication: SELF INJURIOUS BEHAVIOUR
     Route: 048
     Dates: start: 20150528, end: 20150528

REACTIONS (4)
  - Intentional overdose [Recovered/Resolved]
  - Drug abuse [Recovered/Resolved]
  - Self injurious behaviour [Recovered/Resolved]
  - Sopor [Recovered/Resolved]

NARRATIVE: CASE EVENT DATE: 20150528
